FAERS Safety Report 9938328 (Version 1)
Quarter: 2014Q1

REPORT INFORMATION
  Report Type: Report from Study
  Country: US (occurrence: US)
  Receive Date: 20140303
  Receipt Date: 20140303
  Transmission Date: 20141002
  Serious: No
  Sender: FDA-Public Use
  Company Number: US-ABBVIE-13P-163-1032042-00

PATIENT
  Age: 61 Year
  Sex: Female

DRUGS (14)
  1. HUMIRA [Suspect]
     Indication: ANKYLOSING SPONDYLITIS
     Dates: start: 20121219
  2. METHOTREXATE [Concomitant]
     Indication: ANKYLOSING SPONDYLITIS
     Dosage: WEEKLY
     Route: 048
  3. PREDNISONE [Concomitant]
     Indication: ANKYLOSING SPONDYLITIS
     Route: 048
  4. NAPROSYN [Concomitant]
     Indication: PAIN
     Route: 048
  5. TRAMADOL [Concomitant]
     Indication: PAIN
     Route: 048
  6. VICODIN [Concomitant]
     Indication: PAIN
     Dosage: 7.5/750MG
     Route: 048
  7. PERCOCET [Concomitant]
     Indication: PAIN
     Dosage: 5/325MG
     Route: 048
  8. THEOPHYLLINE SUSTAINED RELEASE [Concomitant]
     Indication: ASTHMA
     Route: 048
  9. ACCOLATE [Concomitant]
     Indication: PRODUCT USED FOR UNKNOWN INDICATION
     Route: 048
  10. ADVAIR [Concomitant]
     Indication: ASTHMA
  11. LEVOTHYROXINE [Concomitant]
     Indication: HYPOTHYROIDISM
     Route: 048
  12. ALBUTEROL [Concomitant]
     Indication: ASTHMA
     Dosage: INHALANT
  13. FOLIC ACID [Concomitant]
     Indication: ANKYLOSING SPONDYLITIS
     Route: 048
  14. VITAMIN D [Concomitant]
     Indication: VITAMIN SUPPLEMENTATION
     Route: 048

REACTIONS (3)
  - Incorrect dose administered [Unknown]
  - Injection site pain [Recovered/Resolved]
  - Device malfunction [Unknown]
